FAERS Safety Report 13434548 (Version 2)
Quarter: 2017Q2

REPORT INFORMATION
  Report Type: Spontaneous
  Country: US (occurrence: US)
  Receive Date: 20170413
  Receipt Date: 20170417
  Transmission Date: 20170830
  Serious: No
  Sender: FDA-Public Use
  Company Number: US-BAYER-2017-071045

PATIENT
  Age: 60 Year
  Sex: Female
  Weight: 47 kg

DRUGS (7)
  1. CLARITIN [Suspect]
     Active Substance: LORATADINE
     Indication: INFLUENZA
  2. ASPIRIN BAYER [Suspect]
     Active Substance: ASPIRIN
  3. CLARITIN [Suspect]
     Active Substance: LORATADINE
     Indication: NASAL CONGESTION
     Dosage: 1 DF, UNK
     Route: 048
     Dates: end: 20170412
  4. CLARITIN [Suspect]
     Active Substance: LORATADINE
     Indication: HEADACHE
  5. FAMODINE [Concomitant]
     Active Substance: FAMOTIDINE
  6. BUSPAR [Concomitant]
     Active Substance: BUSPIRONE HYDROCHLORIDE
  7. ATORVASTATIN [Concomitant]
     Active Substance: ATORVASTATIN

REACTIONS (3)
  - Expired product administered [Unknown]
  - Off label use [Unknown]
  - Product use in unapproved indication [Unknown]

NARRATIVE: CASE EVENT DATE: 20170411
